FAERS Safety Report 13128686 (Version 3)
Quarter: 2018Q1

REPORT INFORMATION
  Report Type: Report from Study
  Country: IT (occurrence: IT)
  Receive Date: 20170118
  Receipt Date: 20180313
  Transmission Date: 20180508
  Serious: Yes (Hospitalization)
  Sender: FDA-Public Use
  Company Number: IT-AMGEN-ITACT2016128862

PATIENT
  Age: 47 Year
  Sex: Female

DRUGS (15)
  1. CYCLOPHOSPHAMIDE. [Suspect]
     Active Substance: CYCLOPHOSPHAMIDE
     Indication: PLASMA CELL MYELOMA
     Dosage: 2 G/M2, PER CHEMO REGIM
     Route: 042
     Dates: start: 20160908
  2. TEVAGRASTIM [Suspect]
     Active Substance: FILGRASTIM
     Indication: PRODUCT USED FOR UNKNOWN INDICATION
     Dosage: 30 MU, BID
     Route: 058
     Dates: start: 20160912, end: 20160921
  3. ACYCLOVIR. [Concomitant]
     Active Substance: ACYCLOVIR
     Dosage: 400 MG/ME  (2 TABLETS), QD
     Dates: start: 20160504
  4. MESNA. [Concomitant]
     Active Substance: MESNA
     Dosage: 800 MG, FOUR VIALS AND TWO VIALS RESPECTIVELY.
     Dates: start: 20160908, end: 20160909
  5. SODIUM BICARBONATE. [Concomitant]
     Active Substance: SODIUM BICARBONATE
     Dosage: 500 MG/ME, 2 TABLETS
     Dates: start: 20160504
  6. LANSOPRAZOLE. [Concomitant]
     Active Substance: LANSOPRAZOLE
     Dosage: 30 MG//ME, 1 TABLET, QD
     Dates: start: 20160504
  7. REVLIMID [Suspect]
     Active Substance: LENALIDOMIDE
     Dosage: UNK UNK, PER CHEMO REGIM
     Route: 048
  8. GRANISETRON [Concomitant]
     Active Substance: GRANISETRON
     Dosage: 2 MG/ME, 1 TABLET
     Dates: start: 20160908, end: 20160909
  9. SIDERAL FORTE [Concomitant]
     Active Substance: ASCORBIC ACID\FERRIC PYROPHOSPHATE
     Dosage: 1 TABLET
  10. REVLIMID [Suspect]
     Active Substance: LENALIDOMIDE
     Indication: PLASMA CELL MYELOMA
     Dosage: 10 MG, PER CHEMO REGIM (MAINATAINANCE DOSE)
     Route: 048
     Dates: start: 20160824, end: 20171114
  11. AMLODIPINE [Concomitant]
     Active Substance: AMLODIPINE BESYLATE
     Dosage: 5 MG/ ME 1 TABLET.
     Dates: start: 20160504
  12. BISOPROLOL [Concomitant]
     Active Substance: BISOPROLOL
     Dosage: 1.25 MG/ME (1 TABLET), QD
     Dates: start: 20160516
  13. DIBASE [Concomitant]
     Active Substance: CHOLECALCIFEROL
     Dosage: 100000 UNK, ONE VIAL MONTHLY
  14. CARFILZOMIB [Suspect]
     Active Substance: CARFILZOMIB
     Indication: PLASMA CELL MYELOMA
     Dosage: 49.68 MG, PER CHEMO REGIM
     Route: 042
     Dates: start: 20160808
  15. CEFIXORAL [Concomitant]
     Active Substance: CEFIXIME
     Dosage: 400 MG/ME, 1 TABLET
     Dates: start: 20160912, end: 20160914

REACTIONS (2)
  - Respiratory distress [Recovered/Resolved]
  - Pyrexia [Recovered/Resolved]

NARRATIVE: CASE EVENT DATE: 20160914
